FAERS Safety Report 18807605 (Version 1)
Quarter: 2021Q1

REPORT INFORMATION
  Report Type: Spontaneous
  Country: JP (occurrence: JP)
  Receive Date: 20210129
  Receipt Date: 20210129
  Transmission Date: 20210419
  Serious: Yes (Other)
  Sender: FDA-Public Use
  Company Number: JP-JNJFOC-20210144066

PATIENT
  Age: 53 Year
  Sex: Male

DRUGS (5)
  1. RIVAROXABAN [Suspect]
     Active Substance: RIVAROXABAN
     Indication: ANTICOAGULANT THERAPY
     Dosage: UNK
     Route: 048
     Dates: start: 2019
  2. AMLODIPINE [Concomitant]
     Active Substance: AMLODIPINE BESYLATE
  3. LANSOPRAZOLE. [Concomitant]
     Active Substance: LANSOPRAZOLE
  4. BAYASPIRIN [Suspect]
     Active Substance: ASPIRIN
     Indication: LACUNAR INFARCTION
     Dosage: UNK
     Route: 065
     Dates: start: 2017, end: 2019
  5. CANDESARTAN. [Concomitant]
     Active Substance: CANDESARTAN

REACTIONS (3)
  - Cerebral haemorrhage [Unknown]
  - Atrial fibrillation [Unknown]
  - Hypoaesthesia [Unknown]

NARRATIVE: CASE EVENT DATE: 2019
